FAERS Safety Report 4627002-4 (Version None)
Quarter: 2005Q1

REPORT INFORMATION
  Report Type: 
  Country: None (occurrence: None)
  Receive Date: 20050331
  Receipt Date: 20050318
  Transmission Date: 20050727
  Serious: Yes (Hospitalization)
  Sender: FDA-Public Use
  Company Number: 2005046080

PATIENT
  Age: 11 Year
  Sex: Male

DRUGS (5)
  1. ZITHROMAX [Suspect]
     Indication: NASOPHARYNGITIS
     Dosage: (1 D), ORAL
     Route: 048
     Dates: start: 20050316, end: 20050316
  2. CELESTAMINE TAB [Suspect]
     Indication: ILL-DEFINED DISORDER
     Dosage: (1 D), ORAL
     Route: 048
     Dates: start: 20050201
  3. ALL OTHER THERAPEUTIC PRODUCTS (ALL OTHER THERAPEUTIC PRODUCTS) [Suspect]
     Indication: NASOPHARYNGITIS
     Dosage: (1 D), ORAL
     Route: 048
     Dates: start: 20050316, end: 20050316
  4. LACTOBACILLUS ACIDOPHILUS (LACTOBACILLUS ACIDOPHILUS) [Concomitant]
  5. ACETAMINOPHEN [Concomitant]

REACTIONS (6)
  - ALCOHOL USE [None]
  - CONVULSION [None]
  - DELIRIUM [None]
  - DYSKINESIA [None]
  - ENCEPHALITIS [None]
  - FALL [None]
